FAERS Safety Report 4667240-8 (Version None)
Quarter: 2005Q2

REPORT INFORMATION
  Report Type: 
  Country: None (occurrence: None)
  Receive Date: 20050520
  Receipt Date: 20050413
  Transmission Date: 20051028
  Serious: No
  Sender: FDA-Public Use
  Company Number: US-BRISTOL-MYERS SQUIBB COMPANY-12931010

PATIENT
  Age: 76 Year
  Sex: Female
  Weight: 67 kg

DRUGS (5)
  1. SINEMET [Suspect]
     Indication: DYSKINESIA
  2. ANTIVERT [Concomitant]
  3. NORVASC [Concomitant]
  4. ACIPHEX [Concomitant]
  5. FELDENE [Concomitant]

REACTIONS (1)
  - DRUG INEFFECTIVE [None]
